FAERS Safety Report 6615328-4 (Version None)
Quarter: 2010Q1

REPORT INFORMATION
  Report Type: 
  Country: None (occurrence: None)
  Receive Date: 20100305
  Receipt Date: 20091204
  Transmission Date: 20100710
  Serious: No
  Sender: FDA-Public Use
  Company Number: A0796253A

PATIENT
  Age: 52 Year
  Sex: Female
  Weight: 73.6 kg

DRUGS (11)
  1. REQUIP [Suspect]
     Indication: RESTLESS LEGS SYNDROME
     Dosage: .75MG AT NIGHT
     Route: 048
     Dates: start: 20060801, end: 20090516
  2. ROPINIROLE HYDROCHLORIDE [Suspect]
     Indication: RESTLESS LEGS SYNDROME
     Dosage: .75MG AT NIGHT
     Route: 048
     Dates: start: 20080101, end: 20090101
  3. VICODIN [Concomitant]
  4. PREVACID [Concomitant]
  5. LISINOPRIL [Concomitant]
  6. SYNTHROID [Concomitant]
  7. COPAXONE [Concomitant]
  8. LORAZEPAM [Concomitant]
  9. ZOLOFT [Concomitant]
  10. ZETIA [Concomitant]
  11. MAXAIR [Concomitant]

REACTIONS (1)
  - GAMBLING [None]
